FAERS Safety Report 14188518 (Version 1)
Quarter: 2017Q4

REPORT INFORMATION
  Report Type: Spontaneous
  Country: US (occurrence: US)
  Receive Date: 20171114
  Receipt Date: 20171114
  Transmission Date: 20180321
  Serious: Yes (Other)
  Sender: FDA-Public Use
  Company Number: US-BAUSCH-BL-2017-019849

PATIENT
  Age: 18 Year
  Sex: Male

DRUGS (2)
  1. APRISO [Suspect]
     Active Substance: MESALAMINE
     Dosage: FOUR CAPSULES EACH OF 0.375 GM IN A DAY
     Route: 065
  2. APRISO [Suspect]
     Active Substance: MESALAMINE
     Indication: COLITIS ULCERATIVE
     Dosage: FOUR CAPSULES EACH OF 0.375 GM IN A DAY
     Route: 065
     Dates: start: 20161024, end: 20161219

REACTIONS (3)
  - Stress [Recovered/Resolved]
  - Drug dose omission [Recovered/Resolved]
  - Rectal haemorrhage [Recovered/Resolved]

NARRATIVE: CASE EVENT DATE: 20161219
